FAERS Safety Report 9172535 (Version 1)
Quarter: 2012Q4

REPORT INFORMATION
  Report Type: 
  Country: DE (occurrence: GB)
  Receive Date: 20120911
  Receipt Date: 20120911
  Transmission Date: 20130627
  Serious: Yes (Other)
  Sender: FDA-Public Use
  Company Number: GB-FRI-1000038397

PATIENT
  Age: 80 None
  Sex: Male
  Weight: 63 kg

DRUGS (8)
  1. MEMANTINE [Suspect]
     Indication: DEMENTIA ALZHEIMER^S TYPE
     Dosage: 20 mg
     Route: 048
     Dates: start: 20120730
  2. WARFARIN [Suspect]
     Dosage: 3 mg
     Route: 048
     Dates: start: 201006
  3. WARFARIN [Suspect]
     Dosage: Dose reduced
  4. FUROSEMIDE [Concomitant]
     Dosage: 40 mg
     Route: 048
     Dates: start: 201202
  5. ATORVASTATIN [Concomitant]
     Dosage: 40 mg
     Route: 048
     Dates: start: 200307
  6. RAMIPRIL [Concomitant]
     Dosage: 2.5 mg
     Route: 048
     Dates: start: 201204
  7. BISOPROLOL [Concomitant]
     Dosage: 1.25 mg
     Route: 048
     Dates: start: 201204
  8. SPIRONOLACTONE [Concomitant]
     Dosage: 25 mg
     Route: 048
     Dates: start: 201204

REACTIONS (2)
  - International normalised ratio increased [Unknown]
  - Drug interaction [Unknown]
